FAERS Safety Report 14502824 (Version 1)
Quarter: 2018Q1

REPORT INFORMATION
  Report Type: Report from Study
  Country: US (occurrence: US)
  Receive Date: 20180208
  Receipt Date: 20180208
  Transmission Date: 20180509
  Serious: Yes (Hospitalization)
  Sender: FDA-Public Use
  Company Number: US-BIOGEN-2018BI00520856

PATIENT
  Sex: Female
  Weight: 64.01 kg

DRUGS (1)
  1. TECFIDERA [Suspect]
     Active Substance: DIMETHYL FUMARATE
     Indication: MULTIPLE SCLEROSIS
     Route: 048
     Dates: start: 20171007

REACTIONS (5)
  - Vertigo [Unknown]
  - Dizziness [Unknown]
  - Vomiting [Unknown]
  - Vision blurred [Unknown]
  - Photosensitivity reaction [Unknown]
